FAERS Safety Report 17816884 (Version 1)
Quarter: 2020Q2

REPORT INFORMATION
  Report Type: Spontaneous
  Country: US (occurrence: US)
  Receive Date: 20200522
  Receipt Date: 20200522
  Transmission Date: 20200714
  Serious: No
  Sender: FDA-Public Use
  Company Number: US-FDC LIMITED-2020RIS00006

PATIENT
  Age: 58 Year
  Sex: Male
  Weight: 68.03 kg

DRUGS (2)
  1. TIMOLOL MALEATE. [Suspect]
     Active Substance: TIMOLOL MALEATE
     Indication: GLAUCOMA
     Dosage: 1 DROP, 2X/DAY IN THE LEFT EYE
     Route: 047
     Dates: end: 20191006
  2. TIMOLOL MALEATE. [Suspect]
     Active Substance: TIMOLOL MALEATE
     Dosage: 1 DROP, 2X/DAY IN THE LEFT EYE
     Route: 047
     Dates: start: 20191007, end: 201911

REACTIONS (3)
  - Product contamination [Recovered/Resolved]
  - Eye infection [Recovered/Resolved]
  - Performance status decreased [Recovered/Resolved]

NARRATIVE: CASE EVENT DATE: 201910
